FAERS Safety Report 6037940-6 (Version None)
Quarter: 2009Q1

REPORT INFORMATION
  Report Type: 
  Country: None (occurrence: None)
  Receive Date: 20090114
  Receipt Date: 20090114
  Transmission Date: 20090719
  Serious: Yes (Life-Threatening, Hospitalization)
  Sender: FDA-Public Use
  Company Number: None

PATIENT
  Sex: Female
  Weight: 76.6579 kg

DRUGS (1)
  1. PROPAFENONE HCL [Suspect]
     Indication: ATRIAL FIBRILLATION
     Dosage: 300 MG 2 TIMES ADAY BY MOUTH
     Route: 048
     Dates: start: 20080729, end: 20080925

REACTIONS (13)
  - ASTHENIA [None]
  - BLOOD POTASSIUM DECREASED [None]
  - DIZZINESS [None]
  - DRUG HYPERSENSITIVITY [None]
  - DYSGEUSIA [None]
  - DYSPNOEA [None]
  - ERYTHEMA [None]
  - FATIGUE [None]
  - IMPAIRED DRIVING ABILITY [None]
  - OCULAR HYPERAEMIA [None]
  - PALPITATIONS [None]
  - SWOLLEN TONGUE [None]
  - TEMPERATURE INTOLERANCE [None]
